FAERS Safety Report 16478950 (Version 2)
Quarter: 2019Q3

REPORT INFORMATION
  Report Type: Spontaneous
  Country: US (occurrence: US)
  Receive Date: 20190626
  Receipt Date: 20190724
  Transmission Date: 20191004
  Serious: Yes (Hospitalization, Other)
  Sender: FDA-Public Use
  Company Number: US-RADIUS HEALTH INC.-2019US002125

PATIENT
  Sex: Female

DRUGS (1)
  1. TYMLOS [Suspect]
     Active Substance: ABALOPARATIDE
     Indication: OSTEOPOROSIS POSTMENOPAUSAL
     Dosage: 80 MCG, UNK
     Route: 058

REACTIONS (5)
  - Atrial fibrillation [Unknown]
  - Drug hypersensitivity [Unknown]
  - Pain [Unknown]
  - Eye infection [Unknown]
  - Nephrolithiasis [Unknown]
